FAERS Safety Report 7558022-8 (Version None)
Quarter: 2011Q2

REPORT INFORMATION
  Report Type: 
  Country: None (occurrence: None)
  Receive Date: 20110613
  Receipt Date: 20110527
  Transmission Date: 20111010
  Serious: Yes (Hospitalization, Disabling)
  Sender: FDA-Public Use
  Company Number: DSA_46825_2011

PATIENT
  Age: 65 Year
  Sex: Female

DRUGS (7)
  1. ENALAPRIL MALEATE [Suspect]
     Indication: HYPERTENSION
     Dosage: DF, ORAL
     Route: 048
  2. CYMBALTA [Suspect]
     Indication: PRODUCT USED FOR UNKNOWN INDICATION
     Dosage: DF
  3. TAXOTERE [Suspect]
     Indication: BREAST CANCER
     Dosage: 160 MG FREQUENCY UNKNOWN, INTRAVENOUS (NOT OTHERWISE SPECIFIED; DF INTRAVENOUS, NOT OTHERWISE SPECIF
     Route: 042
     Dates: start: 20110107, end: 20110107
  4. TAXOTERE [Suspect]
     Indication: BREAST CANCER
     Dosage: 160 MG FREQUENCY UNKNOWN, INTRAVENOUS (NOT OTHERWISE SPECIFIED; DF INTRAVENOUS, NOT OTHERWISE SPECIF
     Route: 042
     Dates: start: 20101217, end: 20101217
  5. ESIDREX (ESIDREX - HYDROCHLOROTHIAZIDE (NOT SPECIFED) [Suspect]
     Indication: HYPERTENSION
     Dosage: DF, ORAL
     Route: 048
  6. GLUCOPHAGE [Suspect]
     Indication: TYPE 2 DIABETES MELLITUS
     Dosage: DF,
  7. DIAMICRON (DIAMICRON - GLICLAZIDE) (NOT SPECIFIED) [Suspect]
     Indication: PRODUCT USED FOR UNKNOWN INDICATION
     Dosage: DF,

REACTIONS (8)
  - PALMAR-PLANTAR ERYTHRODYSAESTHESIA SYNDROME [None]
  - DEHYDRATION [None]
  - BREAST CANCER FEMALE [None]
  - MYALGIA [None]
  - CUSHINGOID [None]
  - FACE OEDEMA [None]
  - UROSEPSIS [None]
  - SKIN TOXICITY [None]
